FAERS Safety Report 5525102-8 (Version None)
Quarter: 2007Q4

REPORT INFORMATION
  Report Type: 
  Country: None (occurrence: None)
  Receive Date: 20071119
  Receipt Date: 20071119
  Transmission Date: 20080405
  Serious: Yes (Hospitalization)
  Sender: FDA-Public Use
  Company Number: None

PATIENT
  Age: 5 Day
  Sex: Female
  Weight: 8 kg

DRUGS (2)
  1. LABETALOL HYDROCHLORIDE UNKNOWN [Suspect]
     Indication: HYPERTENSION
     Dosage: 100MG BID PO
     Route: 048
     Dates: start: 20071113, end: 20071116
  2. MAGNESIUM SULFATE [Suspect]
     Indication: HELLP SYNDROME
     Dosage: 4MG BOLUS, THEN 2MG 24 HRS TOTAL IV DRIP
     Route: 041
     Dates: start: 20071113, end: 20071114

REACTIONS (5)
  - DRUG EXPOSURE VIA BREAST MILK [None]
  - MATERNAL CONDITION AFFECTING FOETUS [None]
  - NEONATAL TACHYCARDIA [None]
  - OXYGEN SATURATION DECREASED [None]
  - WEIGHT DECREASE NEONATAL [None]
